FAERS Safety Report 5969038-7 (Version None)
Quarter: 2008Q4

REPORT INFORMATION
  Report Type: 
  Country: None (occurrence: None)
  Receive Date: 20081126
  Receipt Date: 20081117
  Transmission Date: 20090506
  Serious: Yes (Other)
  Sender: FDA-Public Use
  Company Number: US-ELI_LILLY_AND_COMPANY-US200811004802

PATIENT
  Sex: Female

DRUGS (4)
  1. CYMBALTA [Suspect]
     Dosage: 60 MG, UNK
  2. TOPAMAX [Concomitant]
  3. AMBIEN [Concomitant]
  4. CLARINEX [Concomitant]

REACTIONS (1)
  - HEPATIC ENZYME INCREASED [None]
